FAERS Safety Report 4576273-1 (Version None)
Quarter: 2005Q1

REPORT INFORMATION
  Report Type: 
  Country: None (occurrence: None)
  Receive Date: 20050207
  Receipt Date: 20050121
  Transmission Date: 20050727
  Serious: Yes (Disabling, Other)
  Sender: FDA-Public Use
  Company Number: S05-GER-00212-01

PATIENT
  Age: 70 Year
  Sex: Female

DRUGS (5)
  1. CIPRAMIL (CITALOPRAM HYDROBROMIDE) [Suspect]
     Indication: DEPRESSION
     Dosage: 40 MG QD PO
     Route: 048
     Dates: start: 20040108, end: 20040228
  2. CIPRAMIL (CITALOPRAM HYDROBROMIDE) [Suspect]
     Indication: DEPRESSION
     Dosage: 20 MG QD PO
     Route: 048
     Dates: start: 20040321
  3. MELLERIL (THIORIDAZINE HYDROCHLORIDE) [Concomitant]
  4. REMERGIL (MIRTAZAPINE) [Concomitant]
  5. IMAP (FLUSPIRILENE) [Concomitant]

REACTIONS (4)
  - CONDITION AGGRAVATED [None]
  - HYPERHIDROSIS [None]
  - TARDIVE DYSKINESIA [None]
  - TRISMUS [None]
